FAERS Safety Report 24948931 (Version 1)
Quarter: 2025Q1

REPORT INFORMATION
  Report Type: Spontaneous
  Country: JP (occurrence: JP)
  Receive Date: 20250210
  Receipt Date: 20250210
  Transmission Date: 20250409
  Serious: Yes (Other)
  Sender: PFIZER
  Company Number: JP-PFIZER INC-202500026220

PATIENT
  Age: 52 Year
  Sex: Female

DRUGS (1)
  1. LORBRENA [Suspect]
     Active Substance: LORLATINIB
     Indication: Lung neoplasm malignant
     Route: 048

REACTIONS (3)
  - Electrocardiogram QT prolonged [Unknown]
  - Extrasystoles [Unknown]
  - Tachycardia [Unknown]

NARRATIVE: CASE EVENT DATE: 20250201
